FAERS Safety Report 10255621 (Version 2)
Quarter: 2014Q3

REPORT INFORMATION
  Report Type: Spontaneous
  Country: JP (occurrence: None)
  Receive Date: 20140620
  Receipt Date: 20140715
  Transmission Date: 20150326
  Serious: Yes (Other)
  Sender: FDA-Public Use
  Company Number: 2014-19760

PATIENT
  Age: 84 Year
  Sex: Female

DRUGS (2)
  1. EYLEA [Suspect]
     Active Substance: AFLIBERCEPT
     Indication: AGE-RELATED MACULAR DEGENERATION
     Route: 031
     Dates: start: 201302, end: 201302
  2. LUCENTIS (RANIBIZUMAB) [Concomitant]

REACTIONS (2)
  - Intraocular pressure increased [None]
  - Retinal vein occlusion [None]

NARRATIVE: CASE EVENT DATE: 20140501
